FAERS Safety Report 10062651 (Version 2)
Quarter: 2014Q2

REPORT INFORMATION
  Report Type: Spontaneous
  Country: SG (occurrence: AU)
  Receive Date: 20140407
  Receipt Date: 20140505
  Transmission Date: 20141212
  Serious: Yes (Other)
  Sender: FDA-Public Use
  Company Number: SG-JNJFOC-20140401769

PATIENT
  Sex: 0

DRUGS (1)
  1. STELARA [Suspect]
     Indication: PSORIATIC ARTHROPATHY
     Route: 058

REACTIONS (3)
  - Pustular psoriasis [Unknown]
  - Guttate psoriasis [Unknown]
  - Psoriasis [Unknown]
